FAERS Safety Report 16606771 (Version 1)
Quarter: 2019Q3

REPORT INFORMATION
  Report Type: Spontaneous
  Country: DE (occurrence: DE)
  Receive Date: 20190722
  Receipt Date: 20190722
  Transmission Date: 20191004
  Serious: Yes (Life-Threatening, Hospitalization)
  Sender: FDA-Public Use
  Company Number: DE-TEVA-2019-DE-1080252

PATIENT
  Age: 32 Year
  Sex: Female
  Weight: 68 kg

DRUGS (19)
  1. BETA SALBE [Concomitant]
     Dosage: NEED, OINTMENT
     Route: 003
  2. ACICLOVIR [Concomitant]
     Active Substance: ACYCLOVIR
     Dosage: 800 MG, 1-1-1-0, TABLETS
     Route: 048
  3. ADVAGRAF [Suspect]
     Active Substance: TACROLIMUS
     Dosage: 6 MG, 1-0-0-0, CAPSULES
     Route: 048
  4. L-THYROXIN 50 [Concomitant]
     Active Substance: LEVOTHYROXINE SODIUM
     Dosage: 50 MICROGRAMS, 1-0-0-0, TABLETS
     Route: 048
  5. PREDNISOLON [Suspect]
     Active Substance: PREDNISOLONE
     Dosage: 75 MG, 1-0-0-0, TABLETS
     Route: 048
  6. PANTOPRAZOL [Concomitant]
     Active Substance: PANTOPRAZOLE SODIUM
     Dosage: 40 MG, 1-0-1-0, TABLETS
     Route: 048
  7. POSACONAZOL [Concomitant]
     Active Substance: POSACONAZOLE
     Dosage: 100 MG, 0-3-0-0, TABLETS
     Route: 048
  8. FAKTU [Concomitant]
     Dosage: NEED, OINTMENT
     Route: 054
  9. TANNOLACT [Concomitant]
     Dosage: REQUIREMENT, BATH ADDITIVE
     Route: 061
  10. KENTERA 3,9MG/24STUNDEN [Concomitant]
     Dosage: 3.9 MG / DAY, 1-0-0-0, PATCH TRANSDERMAL
     Route: 062
  11. COTRIM FORTE [Concomitant]
     Active Substance: SULFAMETHOXAZOLE\TRIMETHOPRIM
     Dosage: 800|160 MG, REGIMEN, TABLETS
     Route: 048
  12. TRANEXAMSAURE [Concomitant]
     Dosage: 500 G, DEMAND, TABLETS
     Route: 048
  13. URSOFALK 500MG [Concomitant]
     Dosage: 500 MG, 1-1-1-1, TABLETS
     Route: 048
  14. CYTOTECT [Concomitant]
     Active Substance: HUMAN CYTOMEGALOVIRUS IMMUNE GLOBULIN
     Dosage: 200 MICROGRAMS, 1-1-1-1, TABLETS
     Route: 048
  15. DRIDASE [Concomitant]
     Active Substance: OXYBUTYNIN CHLORIDE
     Dosage: 5 MG, 1-1-1-1, TABLETS
     Route: 048
  16. ENTOCORT [Concomitant]
     Active Substance: BUDESONIDE
     Dosage: 3 MG, 1-1-1-0, RETARD CAPSULES
     Route: 048
  17. PROFACT [Concomitant]
     Active Substance: BUSERELIN ACETATE
     Dosage: 2 HUB, 1-1-1-1, DOSIERAEROSOL
     Route: 055
  18. ARAVA [Concomitant]
     Active Substance: LEFLUNOMIDE
     Dosage: 20 MG, 1-0-0-0, TABLETS
     Route: 048
  19. MAGNESIUM [Concomitant]
     Active Substance: MAGNESIUM
     Dosage: 2 DRAGEE, 1-1-1-1, DRAGEES
     Route: 048

REACTIONS (5)
  - Pain [Unknown]
  - Diarrhoea [Unknown]
  - Off label use [Unknown]
  - Headache [Unknown]
  - Pyrexia [Unknown]
